FAERS Safety Report 12473088 (Version 1)
Quarter: 2016Q2

REPORT INFORMATION
  Report Type: Spontaneous
  Country: US (occurrence: US)
  Receive Date: 20160616
  Receipt Date: 20160616
  Transmission Date: 20160815
  Serious: Yes (Life-Threatening)
  Sender: FDA-Public Use
  Company Number: US-ONY, INC.-1053877

PATIENT
  Age: 1 Day
  Sex: Male
  Weight: 1.2 kg

DRUGS (1)
  1. INFASURF [Suspect]
     Active Substance: CALFACTANT
     Indication: ACUTE RESPIRATORY DISTRESS SYNDROME
     Route: 007
     Dates: start: 20160531, end: 20160531

REACTIONS (1)
  - Endotracheal intubation complication [Recovered/Resolved]

NARRATIVE: CASE EVENT DATE: 20160531
